FAERS Safety Report 6180854-1 (Version None)
Quarter: 2009Q2

REPORT INFORMATION
  Report Type: 
  Country: None (occurrence: None)
  Receive Date: 20090504
  Receipt Date: 20090331
  Transmission Date: 20091009
  Serious: Yes (Hospitalization)
  Sender: FDA-Public Use
  Company Number: KV200801584

PATIENT
  Age: 59 Year
  Sex: Female
  Weight: 59.9 kg

DRUGS (2)
  1. MORPHINE SULFATE [Suspect]
     Indication: PAIN
     Dosage: 60 MG, TID, ORAL
     Route: 048
     Dates: start: 20080101, end: 20080101
  2. UNSPECIFIED MEDICATION FOR DEPRESSION [Concomitant]

REACTIONS (19)
  - ACCIDENTAL OVERDOSE [None]
  - ANAEMIA [None]
  - BALANCE DISORDER [None]
  - DEPRESSED LEVEL OF CONSCIOUSNESS [None]
  - DRUG INEFFECTIVE [None]
  - DYSKINESIA [None]
  - FALL [None]
  - HALLUCINATION [None]
  - HYPOTENSION [None]
  - INCOHERENT [None]
  - MEMORY IMPAIRMENT [None]
  - MUSCLE CONTRACTIONS INVOLUNTARY [None]
  - NYSTAGMUS [None]
  - OXYGEN SATURATION DECREASED [None]
  - PNEUMONIA STAPHYLOCOCCAL [None]
  - PRODUCT QUALITY ISSUE [None]
  - SOMNOLENCE [None]
  - SPEECH DISORDER [None]
  - URINARY TRACT INFECTION STAPHYLOCOCCAL [None]
